FAERS Safety Report 5508847-5 (Version None)
Quarter: 2007Q4

REPORT INFORMATION
  Report Type: 
  Country: None (occurrence: None)
  Receive Date: 20071107
  Receipt Date: 20071029
  Transmission Date: 20080405
  Serious: Yes (Hospitalization)
  Sender: FDA-Public Use
  Company Number: US-JNJFOC-20070902872

PATIENT
  Age: 37 Year
  Sex: Male

DRUGS (3)
  1. INVEGA [Suspect]
     Indication: DRUG USE FOR UNKNOWN INDICATION
     Route: 048
  2. PROZAC [Suspect]
     Indication: DRUG USE FOR UNKNOWN INDICATION
  3. SINEQUAN [Concomitant]

REACTIONS (9)
  - ABNORMAL BEHAVIOUR [None]
  - AGGRESSION [None]
  - HEPATIC ENZYME INCREASED [None]
  - HYPOTENSION [None]
  - PYREXIA [None]
  - RENAL FAILURE [None]
  - SEROTONIN SYNDROME [None]
  - TACHYCARDIA [None]
  - WHITE BLOOD CELL COUNT INCREASED [None]
